FAERS Safety Report 24997871 (Version 1)
Quarter: 2025Q1

REPORT INFORMATION
  Report Type: Spontaneous
  Country: US (occurrence: US)
  Receive Date: 20250222
  Receipt Date: 20250222
  Transmission Date: 20250409
  Serious: No
  Sender: SANOFI AVENTIS
  Company Number: US-SA-2025SA043175

PATIENT
  Sex: Female
  Weight: 63.64 kg

DRUGS (11)
  1. DUPIXENT [Suspect]
     Active Substance: DUPILUMAB
     Indication: Dermatitis atopic
     Dosage: 300 MG, QOW
     Route: 058
  2. HYDROXYZINE PAMOATE [Concomitant]
     Active Substance: HYDROXYZINE PAMOATE
  3. PROGESTERONE [Concomitant]
     Active Substance: PROGESTERONE
  4. CLONIDINE HYDROCHLORIDE [Concomitant]
     Active Substance: CLONIDINE HYDROCHLORIDE
  5. ZOLPIDEM TARTRATE [Concomitant]
     Active Substance: ZOLPIDEM TARTRATE
  6. ESTRADIOL [Concomitant]
     Active Substance: ESTRADIOL
  7. SOOLANTRA [Concomitant]
     Active Substance: IVERMECTIN
  8. XDEMVY [Concomitant]
     Active Substance: LOTILANER
  9. CEPHALEXIN [Concomitant]
     Active Substance: CEPHALEXIN
  10. IVERMECTIN [Concomitant]
     Active Substance: IVERMECTIN
  11. ZEPBOUND [Concomitant]
     Active Substance: TIRZEPATIDE

REACTIONS (1)
  - Injection site pain [Unknown]
